FAERS Safety Report 23916173 (Version 1)
Quarter: 2024Q2

REPORT INFORMATION
  Report Type: Report from Study
  Country: US (occurrence: US)
  Receive Date: 20240529
  Receipt Date: 20240529
  Transmission Date: 20240716
  Serious: Yes (Hospitalization, Other)
  Sender: FDA-Public Use
  Company Number: US-SOCIETAL CDMO GAINESVILLE, LLC-SOC-2024-000011

PATIENT
  Age: 14 Year
  Sex: Female

DRUGS (1)
  1. VERAPAMIL HYDROCHLORIDE [Suspect]
     Active Substance: VERAPAMIL HYDROCHLORIDE
     Indication: Product used for unknown indication
     Dosage: 4080 MILLIGRAM, ONE TIME DOSE
     Route: 048

REACTIONS (5)
  - Toxicity to various agents [Unknown]
  - Atrioventricular block complete [Unknown]
  - Bradycardia [Unknown]
  - Hypotension [Unknown]
  - Intentional overdose [Unknown]
